FAERS Safety Report 25105628 (Version 1)
Quarter: 2025Q1

REPORT INFORMATION
  Report Type: Other
  Country: US (occurrence: US)
  Receive Date: 20250321
  Receipt Date: 20250321
  Transmission Date: 20250409
  Serious: No
  Sender: ESPERION THERAPEUTICS
  Company Number: US-DAIICHI SANKYO EUROPE GMBH-DS-2025-125688-US

PATIENT

DRUGS (2)
  1. BEMPEDOIC ACID [Suspect]
     Active Substance: BEMPEDOIC ACID
     Indication: Cardiovascular disorder
     Dosage: 180 MILLIGRAM, QD
     Route: 065
  2. BEMPEDOIC ACID [Suspect]
     Active Substance: BEMPEDOIC ACID
     Indication: Low density lipoprotein increased

REACTIONS (8)
  - Diabetes mellitus [Unknown]
  - Myalgia [Unknown]
  - Cholelithiasis [Unknown]
  - Aspartate aminotransferase increased [Unknown]
  - Alanine aminotransferase increased [Unknown]
  - Gout [Unknown]
  - Blood uric acid increased [Unknown]
  - Blood creatinine increased [Unknown]
